FAERS Safety Report 9822499 (Version 1)
Quarter: 2014Q1

REPORT INFORMATION
  Report Type: Spontaneous
  Country: US (occurrence: US)
  Receive Date: 20140116
  Receipt Date: 20140116
  Transmission Date: 20141002
  Serious: No
  Sender: FDA-Public Use
  Company Number: US-ORAPHARMA-QUINORA-2013-071

PATIENT
  Sex: 0

DRUGS (2)
  1. ARESTIN [Suspect]
     Indication: PERIODONTAL DISEASE
     Dosage: 1 UNK, ONE TIME DOSE
     Route: 050
     Dates: start: 20121227, end: 20121227
  2. ANAESTHETICS, LOCAL [Concomitant]
     Indication: PRODUCT USED FOR UNKNOWN INDICATION
     Dosage: UNK
     Route: 061
     Dates: start: 20121227, end: 20121227

REACTIONS (2)
  - Dental fistula [Unknown]
  - Off label use [Unknown]
